FAERS Safety Report 6804020-9 (Version None)
Quarter: 2010Q2

REPORT INFORMATION
  Report Type: 
  Country: None (occurrence: None)
  Receive Date: 20100628
  Receipt Date: 20060803
  Transmission Date: 20101027
  Serious: Yes (Other)
  Sender: FDA-Public Use
  Company Number: US-PFIZER INC-2006096025

PATIENT
  Sex: Male
  Weight: 133.36 kg

DRUGS (9)
  1. SUTENT [Suspect]
     Indication: RENAL CANCER
     Route: 048
     Dates: start: 20060701
  2. SYNTHROID [Concomitant]
     Route: 048
  3. ALLOPURINOL [Concomitant]
     Route: 048
  4. ALTACE [Concomitant]
     Route: 048
  5. BICITRA [Concomitant]
     Route: 048
  6. MIRALAX [Concomitant]
     Route: 048
  7. WARFARIN [Concomitant]
     Route: 048
  8. PAXIL [Concomitant]
     Route: 048
  9. BENADRYL [Concomitant]
     Route: 048

REACTIONS (4)
  - FATIGUE [None]
  - GLOSSODYNIA [None]
  - PLATELET COUNT DECREASED [None]
  - PRURITUS GENERALISED [None]
